FAERS Safety Report 8121421-X (Version None)
Quarter: 2012Q1

REPORT INFORMATION
  Report Type: 
  Country: None (occurrence: None)
  Receive Date: 20120208
  Receipt Date: 20120201
  Transmission Date: 20120608
  Serious: Yes (Death, Hospitalization)
  Sender: FDA-Public Use
  Company Number: US-CELGENEUS-163-21880-12011476

PATIENT
  Sex: Female
  Weight: 68.1 kg

DRUGS (21)
  1. ONDANSETRON HCL [Concomitant]
     Indication: VOMITING
  2. NEXIUM [Concomitant]
     Route: 065
  3. DILTIAZEM HCL [Concomitant]
     Route: 065
  4. RASBURICASE [Concomitant]
     Route: 065
  5. VELCADE [Concomitant]
     Route: 058
     Dates: end: 20111219
  6. PREDNISONE [Concomitant]
     Route: 065
  7. ZITHROMAX [Concomitant]
     Dosage: 250 MILLIGRAM
     Route: 048
  8. LEVAQUIN [Concomitant]
     Dosage: 500 MILLIGRAM
     Route: 048
  9. SILVASORB [Concomitant]
     Route: 061
     Dates: start: 20120104
  10. PROMETHAZINE HCI [Concomitant]
     Indication: NAUSEA
     Dosage: 25 MILLIGRAM
     Route: 048
  11. ONDANSETRON HCL [Concomitant]
     Indication: NAUSEA
     Dosage: 8 MILLIGRAM
     Route: 048
  12. GUAIFENESIN [Concomitant]
     Dosage: 600 MILLIGRAM
     Route: 048
  13. AZITHROMYCIN [Concomitant]
     Dosage: 250 MILLIGRAM
     Route: 048
  14. COZAAR [Concomitant]
     Route: 065
  15. ALKERAN [Concomitant]
     Route: 065
  16. DEXAMETHASONE [Concomitant]
     Route: 065
  17. VITAMIN B-12 [Concomitant]
     Dosage: 250 MICROGRAM
     Route: 048
  18. MEDROL [Concomitant]
     Dosage: 4 MILLIGRAM
     Route: 048
  19. REVLIMID [Suspect]
     Dosage: 10 MILLIGRAM
     Route: 048
     Dates: start: 20110411
  20. METFORMIN HCL [Concomitant]
     Route: 065
  21. MIRALAX [Concomitant]
     Indication: CONSTIPATION
     Dosage: 17 GRAM
     Route: 048

REACTIONS (2)
  - RENAL FAILURE ACUTE [None]
  - MULTIPLE MYELOMA [None]
